FAERS Safety Report 8286889-7 (Version None)
Quarter: 2012Q2

REPORT INFORMATION
  Report Type: 
  Country: None (occurrence: None)
  Receive Date: 20120416
  Receipt Date: 20120406
  Transmission Date: 20120825
  Serious: Yes (Other)
  Sender: FDA-Public Use
  Company Number: US-BAYER-2012-034149

PATIENT
  Age: 41 Year
  Sex: Female

DRUGS (3)
  1. YAZ [Suspect]
     Dosage: UNK
  2. WARFARIN SODIUM [Concomitant]
     Dosage: UNK
  3. COUMADIN [Concomitant]
     Dosage: UNK

REACTIONS (2)
  - DEEP VEIN THROMBOSIS [None]
  - CHOLELITHIASIS [None]
